FAERS Safety Report 16123946 (Version 1)
Quarter: 2019Q1

REPORT INFORMATION
  Report Type: Spontaneous
  Country: FR (occurrence: FR)
  Receive Date: 20190327
  Receipt Date: 20190327
  Transmission Date: 20190418
  Serious: Yes (Hospitalization)
  Sender: FDA-Public Use
  Company Number: FR-EMD SERONO-E2B_90066905

PATIENT
  Age: 24 Year
  Sex: Female

DRUGS (6)
  1. GONAL-F [Suspect]
     Active Substance: FOLLITROPIN
     Route: 058
  2. OVITRELLE [Suspect]
     Active Substance: CHORIOGONADOTROPIN ALFA
     Indication: IN VITRO FERTILISATION
     Dosage: POWDER AND SOLUTION FOR INJECTABLE SOLUTION
     Route: 058
     Dates: start: 20181102
  3. GONAL-F [Suspect]
     Active Substance: FOLLITROPIN
     Indication: IN VITRO FERTILISATION
     Route: 058
     Dates: start: 20181015
  4. GONAL-F [Suspect]
     Active Substance: FOLLITROPIN
     Route: 058
     Dates: end: 20181030
  5. GONAL-F [Suspect]
     Active Substance: FOLLITROPIN
     Route: 058
  6. ORGALUTRAN [Suspect]
     Active Substance: GANIRELIX ACETATE
     Indication: IN VITRO FERTILISATION
     Dosage: 0.25MG/0.5ML SOLUTION INJECTABLE
     Route: 058
     Dates: start: 20181029, end: 20181101

REACTIONS (2)
  - Ascites [Recovered/Resolved]
  - Ovarian hyperstimulation syndrome [Recovered/Resolved]

NARRATIVE: CASE EVENT DATE: 20181108
